FAERS Safety Report 8628185 (Version 3)
Quarter: 2013Q1

REPORT INFORMATION
  Report Type: Report from Study
  Country: FR (occurrence: FR)
  Receive Date: 20120621
  Receipt Date: 20130125
  Transmission Date: 20140127
  Serious: Yes (Other)
  Sender: FDA-Public Use
  Company Number: FR-ASTRAZENECA-2012SE38400

PATIENT
  Age: 25167 Day
  Sex: Male

DRUGS (20)
  1. ZD6474 [Suspect]
     Indication: THYROID CANCER
     Dosage: BLINDED THERAPY, DAILY
     Route: 048
     Dates: start: 20070129, end: 20100721
  2. ZD6474 [Suspect]
     Indication: THYROID CANCER
     Route: 048
     Dates: start: 20100722
  3. ZD6474 [Suspect]
     Indication: THYROID CANCER
     Route: 048
     Dates: start: 20120530
  4. ZD6474 [Suspect]
     Indication: THYROID CANCER
     Route: 048
     Dates: start: 20120705
  5. ZD6474 [Suspect]
     Indication: THYROID CANCER
     Route: 048
     Dates: start: 20120905
  6. IMODIUM [Concomitant]
     Indication: DIARRHOEA
     Route: 048
  7. LEVOTHYROX [Concomitant]
     Indication: HYPOTHYROIDISM
     Route: 048
     Dates: end: 20070326
  8. LEVOTHYROX [Concomitant]
     Indication: HYPOTHYROIDISM
     Route: 048
     Dates: start: 20070327, end: 20070716
  9. LEVOTHYROX [Concomitant]
     Indication: HYPOTHYROIDISM
     Route: 048
     Dates: start: 20070717, end: 20080111
  10. LEVOTHYROX [Concomitant]
     Indication: HYPOTHYROIDISM
     Route: 048
     Dates: start: 20080112, end: 20080404
  11. LEVOTHYROX [Concomitant]
     Indication: HYPOTHYROIDISM
     Route: 048
     Dates: start: 20080405
  12. CALCIUM [Concomitant]
     Indication: HYPOCALCAEMIA
     Route: 048
     Dates: start: 20071024, end: 20080403
  13. CALCIUM [Concomitant]
     Indication: HYPOCALCAEMIA
     Route: 048
     Dates: start: 20080404
  14. UNALFA [Concomitant]
     Indication: HYPOCALCAEMIA
     Route: 048
     Dates: start: 20071024, end: 20080403
  15. UNALFA [Concomitant]
     Indication: HYPOCALCAEMIA
     Route: 048
     Dates: start: 20080628, end: 20080918
  16. UNALFA [Concomitant]
     Indication: HYPOCALCAEMIA
     Route: 048
     Dates: start: 20080919
  17. KENZEN [Concomitant]
     Indication: HYPERTENSION
     Route: 048
     Dates: start: 20081201
  18. SELOKEN [Concomitant]
     Indication: CARDIOVASCULAR EVENT PROPHYLAXIS
     Route: 048
     Dates: start: 20090202
  19. SELOKEN [Concomitant]
     Indication: CARDIOVASCULAR EVENT PROPHYLAXIS
     Route: 048
     Dates: start: 20110623
  20. HYTACANB [Concomitant]
     Indication: HYPERTENSION
     Route: 048
     Dates: start: 20110906

REACTIONS (1)
  - Cerebellar syndrome [Recovered/Resolved]
